FAERS Safety Report 18257815 (Version 2)
Quarter: 2020Q3

REPORT INFORMATION
  Report Type: Spontaneous
  Country: RU (occurrence: RU)
  Receive Date: 20200911
  Receipt Date: 20200914
  Transmission Date: 20201103
  Serious: Yes (Death, Other)
  Sender: FDA-Public Use
  Company Number: RU-SA-2020SA246939

PATIENT

DRUGS (32)
  1. CLEXANE [Suspect]
     Active Substance: ENOXAPARIN SODIUM
     Indication: COMPUTERISED TOMOGRAM
  2. LINEZOLID. [Suspect]
     Active Substance: LINEZOLID
     Indication: PNEUMONIA
  3. LINEZOLID. [Suspect]
     Active Substance: LINEZOLID
     Indication: PNEUMONIA
  4. DEXAMETHASONE. [Suspect]
     Active Substance: DEXAMETHASONE
     Indication: RESPIRATORY FAILURE
  5. FUROSEMIDE. [Suspect]
     Active Substance: FUROSEMIDE
     Indication: RESPIRATORY FAILURE
  6. DEXAMETHASONE. [Suspect]
     Active Substance: DEXAMETHASONE
     Indication: COMPUTERISED TOMOGRAM
  7. CLEXANE [Suspect]
     Active Substance: ENOXAPARIN SODIUM
     Indication: COVID-19
  8. MEROPENEM. [Suspect]
     Active Substance: MEROPENEM
     Indication: COMPUTERISED TOMOGRAM
  9. ACETYLCYSTEINE. [Suspect]
     Active Substance: ACETYLCYSTEINE
     Indication: RESPIRATORY FAILURE
  10. LASOLVAN [Suspect]
     Active Substance: AMBROXOL HYDROCHLORIDE
     Indication: RESPIRATORY FAILURE
  11. MEROPENEM. [Suspect]
     Active Substance: MEROPENEM
     Indication: PNEUMONIA
  12. MEROPENEM. [Suspect]
     Active Substance: MEROPENEM
     Indication: COVID-19
  13. ACETYLCYSTEINE. [Suspect]
     Active Substance: ACETYLCYSTEINE
     Indication: PNEUMONIA
  14. LOPINAVIR/RITONAVIR [Suspect]
     Active Substance: LOPINAVIR\RITONAVIR
     Indication: PNEUMONIA
  15. ACETYLCYSTEINE. [Suspect]
     Active Substance: ACETYLCYSTEINE
     Indication: COMPUTERISED TOMOGRAM
  16. FUROSEMIDE. [Suspect]
     Active Substance: FUROSEMIDE
     Indication: PNEUMONIA
  17. CLEXANE [Suspect]
     Active Substance: ENOXAPARIN SODIUM
     Indication: RESPIRATORY FAILURE
  18. LINEZOLID. [Suspect]
     Active Substance: LINEZOLID
     Indication: RESPIRATORY FAILURE
  19. LASOLVAN [Suspect]
     Active Substance: AMBROXOL HYDROCHLORIDE
     Indication: COVID-19
  20. CLEXANE [Suspect]
     Active Substance: ENOXAPARIN SODIUM
     Indication: PNEUMONIA
  21. MEROPENEM. [Suspect]
     Active Substance: MEROPENEM
     Indication: RESPIRATORY FAILURE
  22. LOPINAVIR/RITONAVIR [Suspect]
     Active Substance: LOPINAVIR\RITONAVIR
     Indication: COMPUTERISED TOMOGRAM
  23. DEXAMETHASONE. [Suspect]
     Active Substance: DEXAMETHASONE
     Indication: PNEUMONIA
  24. LOPINAVIR/RITONAVIR [Suspect]
     Active Substance: LOPINAVIR\RITONAVIR
     Indication: COVID-19
  25. LOPINAVIR/RITONAVIR [Suspect]
     Active Substance: LOPINAVIR\RITONAVIR
     Indication: RESPIRATORY FAILURE
  26. LINEZOLID. [Suspect]
     Active Substance: LINEZOLID
     Indication: COMPUTERISED TOMOGRAM
  27. ACETYLCYSTEINE. [Suspect]
     Active Substance: ACETYLCYSTEINE
     Indication: COVID-19
  28. DEXAMETHASONE. [Suspect]
     Active Substance: DEXAMETHASONE
     Indication: COVID-19
  29. FUROSEMIDE. [Suspect]
     Active Substance: FUROSEMIDE
     Indication: COVID-19
  30. FUROSEMIDE. [Suspect]
     Active Substance: FUROSEMIDE
     Indication: COMPUTERISED TOMOGRAM
  31. LASOLVAN [Suspect]
     Active Substance: AMBROXOL HYDROCHLORIDE
     Indication: PNEUMONIA
  32. LASOLVAN [Suspect]
     Active Substance: AMBROXOL HYDROCHLORIDE
     Indication: COMPUTERISED TOMOGRAM

REACTIONS (4)
  - Acute respiratory failure [Unknown]
  - Off label use [Unknown]
  - Death [Fatal]
  - Pulmonary oedema [Unknown]

NARRATIVE: CASE EVENT DATE: 20200701
